FAERS Safety Report 11679215 (Version 2)
Quarter: 2015Q4

REPORT INFORMATION
  Report Type: Spontaneous
  Country: US (occurrence: US)
  Receive Date: 20151027
  Receipt Date: 20151104
  Transmission Date: 20160304
  Serious: No
  Sender: FDA-Public Use
  Company Number: US-ELI_LILLY_AND_COMPANY-US201010003932

PATIENT
  Age: 78 Year
  Sex: Female

DRUGS (10)
  1. MOMETASONE [Concomitant]
     Active Substance: MOMETASONE
  2. XOPENEX [Concomitant]
     Active Substance: LEVALBUTEROL HYDROCHLORIDE
  3. NORVASC [Concomitant]
     Active Substance: AMLODIPINE BESYLATE
  4. FAMVIR [Concomitant]
     Active Substance: FAMCICLOVIR
     Indication: GENITAL HERPES
     Dosage: 500 MG, AS NEEDED
     Route: 048
  5. CENTRUM SILVER [Concomitant]
     Active Substance: MINERALS\VITAMINS
  6. FORTEO [Suspect]
     Active Substance: TERIPARATIDE
     Indication: OSTEOPOROSIS
     Dosage: 20 UG, DAILY (1/D)
     Dates: start: 20081105
  7. CALCIUM [Concomitant]
     Active Substance: CALCIUM
     Dosage: 1800 U, UNK
  8. MAXZIDE [Concomitant]
     Active Substance: HYDROCHLOROTHIAZIDE\TRIAMTERENE
  9. ADVAIR HFA [Concomitant]
     Active Substance: FLUTICASONE PROPIONATE\SALMETEROL XINAFOATE
  10. VITAMIN D3 [Concomitant]
     Active Substance: CHOLECALCIFEROL

REACTIONS (6)
  - Bowen^s disease [Unknown]
  - Seborrhoeic keratosis [Unknown]
  - Furuncle [Unknown]
  - Skin papilloma [Unknown]
  - Dermoid cyst [Unknown]
  - Nasal polyps [Unknown]

NARRATIVE: CASE EVENT DATE: 200910
